FAERS Safety Report 6905142-4 (Version None)
Quarter: 2010Q3

REPORT INFORMATION
  Report Type: 
  Country: None (occurrence: None)
  Receive Date: 20100804
  Receipt Date: 20091012
  Transmission Date: 20110219
  Serious: No
  Sender: FDA-Public Use
  Company Number: US-PFIZER INC-2009224037

PATIENT
  Sex: Female
  Weight: 79.378 kg

DRUGS (2)
  1. LYRICA [Suspect]
     Indication: FIBROMYALGIA
     Dosage: 50 MG, 1X/DAY
     Dates: start: 20090603
  2. AMBIEN [Concomitant]
     Indication: SLEEP DISORDER

REACTIONS (2)
  - DIZZINESS [None]
  - FATIGUE [None]
